FAERS Safety Report 18337751 (Version 2)
Quarter: 2020Q4

REPORT INFORMATION
  Report Type: Spontaneous
  Country: PT (occurrence: PT)
  Receive Date: 20201002
  Receipt Date: 20201002
  Transmission Date: 20210113
  Serious: Yes (Death, Other)
  Sender: FDA-Public Use
  Company Number: PT-CELGENEUS-PRT-20200907339

PATIENT
  Age: 62 Year
  Sex: Male

DRUGS (1)
  1. AZACITIDINE. [Suspect]
     Active Substance: AZACITIDINE
     Indication: MYELODYSPLASTIC SYNDROME
     Route: 065

REACTIONS (5)
  - Klebsiella infection [Fatal]
  - Febrile neutropenia [Fatal]
  - Acute myeloid leukaemia [Unknown]
  - Infection [Unknown]
  - Pancytopenia [Unknown]
